FAERS Safety Report 25113333 (Version 1)
Quarter: 2025Q1

REPORT INFORMATION
  Report Type: Spontaneous
  Country: PL (occurrence: PL)
  Receive Date: 20250324
  Receipt Date: 20250324
  Transmission Date: 20250409
  Serious: Yes (Death)
  Sender: PFIZER
  Company Number: None

PATIENT
  Age: 70 Year
  Sex: Female

DRUGS (3)
  1. MEROPENEM [Suspect]
     Active Substance: MEROPENEM
     Indication: Pneumonia
     Dosage: FREQ:12 H; MERONEM 1 G POWDER FOR SOLUTION FOR INJECTION OR INFUSION
     Route: 042
     Dates: start: 20240205, end: 20240211
  2. AMOXICILLIN\CLAVULANATE POTASSIUM [Suspect]
     Active Substance: AMOXICILLIN\CLAVULANATE POTASSIUM
     Indication: Pneumonia
     Dosage: FREQ:12 H; AMOKSIKLAV 1 G + 200 MG POWDER FOR SOLUTION FOR INJECTION AND INFUSION
     Route: 042
     Dates: start: 20240204, end: 20240205
  3. AMOXICILLIN [Suspect]
     Active Substance: AMOXICILLIN
     Indication: Pneumonia
     Dosage: FREQ:12 H; AMOTAKS 1G TABLETS
     Route: 048
     Dates: start: 20240202, end: 20240204

REACTIONS (1)
  - Clostridium difficile infection [Fatal]

NARRATIVE: CASE EVENT DATE: 20240210
